FAERS Safety Report 8513078 (Version 3)
Quarter: 2012Q4

REPORT INFORMATION
  Report Type: 
  Country: IE (occurrence: IE)
  Receive Date: 20120413
  Receipt Date: 20121126
  Transmission Date: 20130627
  Serious: Yes (Other)
  Sender: FDA-Public Use
  Company Number: IE-ELI_LILLY_AND_COMPANY-IE201204001523

PATIENT
  Sex: Female

DRUGS (8)
  1. FORSTEO [Suspect]
     Indication: OSTEOPOROSIS
     Dosage: 20 ug, unknown
     Route: 058
     Dates: start: 20111025
  2. LIPITOR [Concomitant]
     Dosage: UNK, unknown
     Route: 065
  3. ELTROXIN [Concomitant]
     Dosage: UNK, unknown
     Route: 065
  4. BETALOC [Concomitant]
     Dosage: UNK, unknown
     Route: 065
  5. NU-SEALS ASPIRIN [Concomitant]
     Dosage: UNK, unknown
     Route: 065
  6. ANTIHYPERTENSIVES [Concomitant]
     Dosage: UNK, unknown
     Route: 065
  7. STATIN                             /00084401/ [Concomitant]
     Dosage: UNK, unknown
     Route: 065
  8. ASPIRIN [Concomitant]
     Dosage: UNK, unknown
     Route: 065

REACTIONS (2)
  - Sinus tachycardia [Recovered/Resolved]
  - Palpitations [Recovered/Resolved]
